FAERS Safety Report 7913368-6 (Version None)
Quarter: 2011Q4

REPORT INFORMATION
  Report Type: 
  Country: None (occurrence: None)
  Receive Date: 20111114
  Receipt Date: 20111101
  Transmission Date: 20120403
  Serious: Yes (Other)
  Sender: FDA-Public Use
  Company Number: US-ELI_LILLY_AND_COMPANY-US201010001034

PATIENT
  Sex: Female

DRUGS (3)
  1. FORTEO [Suspect]
     Indication: OSTEOPOROSIS
     Dosage: 20 UG, DAILY (1/D)
     Route: 065
     Dates: start: 20100913
  2. CALCIUM CARBONATE [Concomitant]
  3. FORTEO [Suspect]
     Dosage: 20 UG, QD
     Route: 065

REACTIONS (6)
  - BREAST CALCIFICATIONS [None]
  - MUSCLE SPASMS [None]
  - LAZINESS [None]
  - MEMORY IMPAIRMENT [None]
  - SLUGGISHNESS [None]
  - SKIN EXFOLIATION [None]
